FAERS Safety Report 5186778-0 (Version None)
Quarter: 2006Q4

REPORT INFORMATION
  Report Type: 
  Country: None (occurrence: None)
  Receive Date: 20061220
  Receipt Date: 20061025
  Transmission Date: 20070319
  Serious: No
  Sender: FDA-Public Use
  Company Number: US-AMGEN-KDL198125

PATIENT
  Sex: Female

DRUGS (7)
  1. ENBREL [Suspect]
     Indication: RHEUMATOID ARTHRITIS
     Route: 058
     Dates: start: 20061015
  2. METHOTREXATE [Concomitant]
     Dates: start: 19991001
  3. CELEBREX [Concomitant]
  4. FOLIC ACID [Concomitant]
  5. PREDNISONE TAB [Concomitant]
  6. ZYRTEC [Concomitant]
  7. ACIPHEX [Concomitant]

REACTIONS (2)
  - BLISTER [None]
  - RASH ERYTHEMATOUS [None]
